FAERS Safety Report 9470416 (Version 2)
Quarter: 2013Q3

REPORT INFORMATION
  Report Type: Spontaneous
  Country: FR (occurrence: FR)
  Receive Date: 20130822
  Receipt Date: 20130913
  Transmission Date: 20140515
  Serious: Yes (Life-Threatening)
  Sender: FDA-Public Use
  Company Number: FR-B.I. PHARMACEUTICALS,INC./RIDGEFIELD-2013-FF-02123FF

PATIENT
  Age: 66 Year
  Sex: Female

DRUGS (4)
  1. PRADAXA [Suspect]
     Indication: ATRIAL FIBRILLATION
     Dosage: 220 MG
     Route: 048
     Dates: start: 201209, end: 20130805
  2. SOTALOL [Concomitant]
     Dosage: 80 MG
     Route: 048
     Dates: end: 20130805
  3. ATORVASTATIN [Concomitant]
     Dosage: 20 MG
     Route: 048
     Dates: end: 20130805
  4. TOLEXINE [Concomitant]
     Route: 048
     Dates: start: 201306, end: 20130805

REACTIONS (4)
  - Melaena [Not Recovered/Not Resolved]
  - Ecchymosis [Recovered/Resolved]
  - Anaemia [Not Recovered/Not Resolved]
  - Anticoagulation drug level above therapeutic [Recovered/Resolved]
